FAERS Safety Report 17626532 (Version 1)
Quarter: 2020Q2

REPORT INFORMATION
  Report Type: Spontaneous
  Country: US (occurrence: US)
  Receive Date: 20200404
  Receipt Date: 20200404
  Transmission Date: 20200713
  Serious: Yes (Other)
  Sender: FDA-Public Use
  Company Number: US-NOVOPROD-720935

PATIENT
  Sex: Male

DRUGS (1)
  1. NOVOLOG [Suspect]
     Active Substance: INSULIN ASPART
     Indication: TYPE 2 DIABETES MELLITUS
     Dosage: 95 IU, QD(25 UNITS FOR BREAKFAST 35 FOR LUNCH AND DINNER)
     Route: 058
     Dates: start: 2015

REACTIONS (1)
  - Bladder cancer [Unknown]
